FAERS Safety Report 10674042 (Version 2)
Quarter: 2015Q1

REPORT INFORMATION
  Report Type: Spontaneous
  Country: US (occurrence: US)
  Receive Date: 20141224
  Receipt Date: 20150129
  Transmission Date: 20150720
  Serious: No
  Sender: FDA-Public Use
  Company Number: US-ASTRAZENECA-2014SE96745

PATIENT
  Sex: Male
  Weight: 31.8 kg

DRUGS (4)
  1. SYMBICORT [Suspect]
     Active Substance: BUDESONIDE\FORMOTEROL FUMARATE DIHYDRATE
     Indication: BRONCHIAL DISORDER
     Dosage: DOSE: 160 MCG/4.5 MCG,2 PUFFS, FREQUENCY:TWO TIMES A DAY
     Route: 055
  2. SYMBICORT [Suspect]
     Active Substance: BUDESONIDE\FORMOTEROL FUMARATE DIHYDRATE
     Indication: DYSPNOEA
     Dosage: DOSE: 160 MCG/4.5 MCG,2 PUFFS, FREQUENCY:TWO TIMES A DAY
     Route: 055
  3. ADVAIR HFA [Concomitant]
     Active Substance: FLUTICASONE PROPIONATE\SALMETEROL XINAFOATE
  4. SYMBICORT [Suspect]
     Active Substance: BUDESONIDE\FORMOTEROL FUMARATE DIHYDRATE
     Indication: CARDIAC DISORDER
     Dosage: DOSE: 160 MCG/4.5 MCG,2 PUFFS, FREQUENCY:TWO TIMES A DAY
     Route: 055

REACTIONS (3)
  - Product use issue [Unknown]
  - Intentional product misuse [Unknown]
  - Memory impairment [Unknown]

NARRATIVE: CASE EVENT DATE: 20141205
